FAERS Safety Report 8017032-7 (Version None)
Quarter: 2012Q1

REPORT INFORMATION
  Report Type: 
  Country: None (occurrence: None)
  Receive Date: 20120102
  Receipt Date: 20111228
  Transmission Date: 20120608
  Serious: Yes (Death, Hospitalization, Disabling, Other)
  Sender: FDA-Public Use
  Company Number: PHEH2009US16963

PATIENT
  Sex: Female

DRUGS (38)
  1. OXYCONTIN [Concomitant]
     Dosage: 1 DF, Q12H
     Route: 048
  2. DEXAMETHASONE [Concomitant]
     Dosage: 1 DF, QD
     Route: 048
  3. AFINITOR [Concomitant]
     Dosage: 1 DF, QD
     Route: 048
  4. ULTRACET [Concomitant]
  5. PANTOPRAZOLE [Concomitant]
     Route: 048
  6. DOCUSATE SODIUM [Concomitant]
     Dosage: 100 MG, BID
     Route: 048
  7. GEMFIBROZIL [Concomitant]
  8. PREMPHASE (PREMARIN;CYCRIN 14/14) [Concomitant]
     Dosage: 1 DF, QD
     Route: 048
  9. NEXIUM [Concomitant]
     Dosage: 20 MG, QD
  10. ALBUTEROL [Concomitant]
  11. METOPROLOL TARTRATE [Concomitant]
     Dosage: 0.5 DF, BID
     Route: 048
  12. PREDNISONE [Concomitant]
  13. ATROVENT [Concomitant]
  14. NOVOLOG [Concomitant]
  15. GLYBURIDE AND METFORMIN HCL [Concomitant]
     Dosage: 2 DF, BID
     Route: 048
  16. VENTOLIN [Concomitant]
  17. SUTENT [Concomitant]
     Dates: start: 20090401, end: 20090801
  18. NEXAVAR [Concomitant]
     Dates: start: 20080401, end: 20090401
  19. ROCEPHIN [Concomitant]
     Dosage: 500 MG, UNK
     Route: 030
  20. XOPENEX [Concomitant]
  21. AMITIZA [Concomitant]
  22. CHLORHEXIDINE GLUCONATE [Concomitant]
  23. LEXAPRO [Concomitant]
  24. LANTUS [Concomitant]
     Dosage: 95 U, BID
  25. LOTREL [Concomitant]
     Dosage: 1 DF, QD
     Route: 048
  26. ZOMETA [Suspect]
     Indication: METASTASES TO BONE
     Dosage: UNK UKN, MONTHLY
  27. CLONIDINE HYDROCHLORIDE [Concomitant]
     Dosage: 1 DF, BID
     Route: 048
  28. TRAZODONE HCL [Concomitant]
     Dosage: 1 DF, QHS
     Route: 048
  29. PHENERGAN [Concomitant]
     Dosage: 1 TSP, Q4H
  30. ZOLOFT [Concomitant]
  31. METOCLOPRAMIDE [Concomitant]
     Dosage: 5 MG, QID
  32. NORVASC [Concomitant]
  33. OXYCODONE HYDROCHLORIDE [Concomitant]
     Dosage: 1 DF, Q4H
     Route: 048
  34. LEVAQUIN [Concomitant]
  35. ADVAIR DISKUS 100/50 [Concomitant]
  36. GLUCOVANCE [Concomitant]
  37. ACTOS [Concomitant]
  38. VENTOLIN [Concomitant]

REACTIONS (100)
  - CARDIOMEGALY [None]
  - ATELECTASIS [None]
  - PERICARDIAL EFFUSION [None]
  - DYSPNOEA [None]
  - OSTEOMYELITIS [None]
  - OSTEOARTHRITIS [None]
  - DEPRESSION [None]
  - MUSCLE SPASMS [None]
  - HYPERCALCAEMIA [None]
  - METABOLIC SYNDROME [None]
  - MUSCULAR WEAKNESS [None]
  - WEIGHT DECREASED [None]
  - INSOMNIA [None]
  - ADNEXA UTERI CYST [None]
  - ANAEMIA OF MALIGNANT DISEASE [None]
  - GASTRITIS [None]
  - SEPSIS [None]
  - HEADACHE [None]
  - OSTEOPOROSIS [None]
  - METASTASES TO BONE [None]
  - OEDEMA PERIPHERAL [None]
  - NAUSEA [None]
  - OSTEOCHONDROSIS [None]
  - CONSTIPATION [None]
  - PROTEINURIA [None]
  - BRONCHITIS [None]
  - ANGIOMYOLIPOMA [None]
  - TACHYCARDIA [None]
  - RESTLESSNESS [None]
  - INJURY [None]
  - OSTEOSCLEROSIS [None]
  - ABDOMINAL PAIN [None]
  - HIGH DENSITY LIPOPROTEIN DECREASED [None]
  - SOFT TISSUE INJURY [None]
  - GINGIVAL INFECTION [None]
  - DENTAL CARIES [None]
  - GASTRIC ULCER [None]
  - COUGH [None]
  - RETINAL HAEMORRHAGE [None]
  - PARAESTHESIA [None]
  - PLEURAL EFFUSION [None]
  - ANXIETY [None]
  - ABDOMINAL HERNIA [None]
  - HYPOAESTHESIA [None]
  - LIPID METABOLISM DISORDER [None]
  - BLOOD TRIGLYCERIDES INCREASED [None]
  - ELECTROLYTE IMBALANCE [None]
  - PAIN IN JAW [None]
  - UPPER RESPIRATORY TRACT INFECTION [None]
  - DYSTHYMIC DISORDER [None]
  - PANIC ATTACK [None]
  - PNEUMOTHORAX [None]
  - VOMITING [None]
  - DIARRHOEA [None]
  - OBESITY [None]
  - TINNITUS [None]
  - ARTHRALGIA [None]
  - DECREASED APPETITE [None]
  - VASCULAR INSUFFICIENCY [None]
  - CHRONIC OBSTRUCTIVE PULMONARY DISEASE [None]
  - IMPAIRED GASTRIC EMPTYING [None]
  - NASAL CONGESTION [None]
  - CARCINOMA IN SITU [None]
  - CARPAL TUNNEL SYNDROME [None]
  - HEPATIC STEATOSIS [None]
  - OSTEONECROSIS OF JAW [None]
  - METASTASES TO ADRENALS [None]
  - PYREXIA [None]
  - HAEMATURIA [None]
  - RENAL MASS [None]
  - PNEUMONIA [None]
  - BACK PAIN [None]
  - SLEEP APNOEA SYNDROME [None]
  - VERTIGO [None]
  - POLYDIPSIA [None]
  - GASTROOESOPHAGEAL REFLUX DISEASE [None]
  - RENAL FAILURE ACUTE [None]
  - NIGHT SWEATS [None]
  - METASTATIC PAIN [None]
  - OESOPHAGITIS [None]
  - DYSPEPSIA [None]
  - GLAUCOMA [None]
  - PRIMARY SEQUESTRUM [None]
  - DEATH [None]
  - LUNG NEOPLASM [None]
  - LYMPHADENOPATHY [None]
  - PAIN [None]
  - ANHEDONIA [None]
  - OSTEOLYSIS [None]
  - CHEST PAIN [None]
  - HYPERKALAEMIA [None]
  - LIGAMENT SPRAIN [None]
  - TOOTHACHE [None]
  - FEMUR FRACTURE [None]
  - CANDIDIASIS [None]
  - CELLULITIS [None]
  - ONYCHOMYCOSIS [None]
  - VULVOVAGINAL MYCOTIC INFECTION [None]
  - SINUSITIS [None]
  - RHINORRHOEA [None]
